FAERS Safety Report 7230290-1 (Version None)
Quarter: 2011Q1

REPORT INFORMATION
  Report Type: 
  Country: None (occurrence: None)
  Receive Date: 20110118
  Receipt Date: 20110114
  Transmission Date: 20110831
  Serious: No
  Sender: FDA-Public Use
  Company Number: US-ROXANE LABORATORIES, INC.-2010-RO-01496RO

PATIENT
  Sex: Female
  Weight: 48 kg

DRUGS (2)
  1. BUPRENORPHINE HYDROCHLORIDE [Suspect]
     Indication: PAIN MANAGEMENT
     Dosage: 8 MG
     Route: 060
     Dates: start: 20100301
  2. TRAZODONE [Concomitant]
     Indication: SLEEP DISORDER

REACTIONS (1)
  - PRURITUS GENERALISED [None]
